FAERS Safety Report 4639140-0 (Version None)
Quarter: 2005Q2

REPORT INFORMATION
  Report Type: 
  Country: None (occurrence: None)
  Receive Date: 20050415
  Receipt Date: 20050415
  Transmission Date: 20051028
  Serious: Yes (Disabling, Congenital Anomaly, Other)
  Sender: FDA-Public Use
  Company Number: None

PATIENT
  Age: 48 Year
  Sex: Male
  Weight: 111.1313 kg

DRUGS (1)
  1. ROXICET [Suspect]
     Indication: PAIN
     Dosage: 4/DAILY

REACTIONS (2)
  - DRUG LEVEL DECREASED [None]
  - PHARMACEUTICAL PRODUCT COUNTERFEIT [None]
